FAERS Safety Report 16372951 (Version 1)
Quarter: 2019Q2

REPORT INFORMATION
  Report Type: Spontaneous
  Country: US (occurrence: US)
  Receive Date: 20190424
  Receipt Date: 20190424
  Transmission Date: 20190711
  Serious: Yes (Hospitalization)
  Sender: FDA-Public Use
  Company Number: None

PATIENT
  Age: 73 Year
  Sex: Female

DRUGS (4)
  1. PACLITAXEL. [Concomitant]
     Active Substance: PACLITAXEL
  2. NIVOLUMAB [Suspect]
     Active Substance: NIVOLUMAB
     Indication: OESOPHAGEAL CARCINOMA
     Dosage: ?          OTHER FREQUENCY:2 TIMES;?
     Route: 042
     Dates: start: 20190117
  3. RELATLIMAB [Suspect]
     Active Substance: RELATLIMAB
     Dosage: ?          OTHER FREQUENCY:2 TIMES;?
     Route: 042
     Dates: start: 20190221
  4. CARBOPLATIN. [Concomitant]
     Active Substance: CARBOPLATIN

REACTIONS (2)
  - Dyspnoea [None]
  - Liver function test increased [None]

NARRATIVE: CASE EVENT DATE: 20190326
